FAERS Safety Report 5352899-2 (Version None)
Quarter: 2007Q2

REPORT INFORMATION
  Report Type: 
  Country: None (occurrence: None)
  Receive Date: 20070611
  Receipt Date: 20070604
  Transmission Date: 20071010
  Serious: Yes (Other)
  Sender: FDA-Public Use
  Company Number: US-PFIZER INC-2007044134

PATIENT
  Sex: Female
  Weight: 74.8 kg

DRUGS (9)
  1. LYRICA [Suspect]
     Indication: POLYNEUROPATHY
  2. EVISTA [Concomitant]
  3. PLAVIX [Concomitant]
  4. TOPROL-XL [Concomitant]
  5. LEVOTHYROXINE SODIUM [Concomitant]
  6. VYTORIN [Concomitant]
  7. NITROFURANTOIN [Concomitant]
  8. MULTIVITAMIN [Concomitant]
  9. VALIUM [Concomitant]

REACTIONS (3)
  - BALANCE DISORDER [None]
  - DRUG INEFFECTIVE [None]
  - VISION BLURRED [None]
